FAERS Safety Report 6112632-3 (Version None)
Quarter: 2009Q1

REPORT INFORMATION
  Report Type: 
  Country: None (occurrence: None)
  Receive Date: 20090312
  Receipt Date: 20090302
  Transmission Date: 20090719
  Serious: Yes (Hospitalization)
  Sender: FDA-Public Use
  Company Number: CL-SANOFI-SYNTHELABO-A01200902262

PATIENT
  Age: 74 Year
  Sex: Male

DRUGS (5)
  1. AMOXICILLIN AND CLAVULANATE POTASSIUM [Concomitant]
     Dosage: UNK
  2. LIPITOR [Concomitant]
     Dosage: UNK
  3. ATENOLOL [Concomitant]
     Dosage: UNK
  4. XELODA [Suspect]
     Dosage: 3000 MG
     Route: 048
  5. OXALIPLATIN [Suspect]
     Indication: COLON CANCER
     Dosage: 110 MG
     Route: 065

REACTIONS (5)
  - CONVULSION [None]
  - CORONARY ARTERY STENOSIS [None]
  - DYSPNOEA [None]
  - MALAISE [None]
  - MYOCARDIAL INFARCTION [None]
